FAERS Safety Report 19469242 (Version 4)
Quarter: 2022Q3

REPORT INFORMATION
  Report Type: Report from Study
  Country: CA (occurrence: CA)
  Receive Date: 20210629
  Receipt Date: 20220716
  Transmission Date: 20221027
  Serious: Yes (Hospitalization, Other)
  Sender: FDA-Public Use
  Company Number: CA-ABBVIE-21K-028-3968077-00

PATIENT
  Sex: Female

DRUGS (1)
  1. HUMIRA [Suspect]
     Active Substance: ADALIMUMAB
     Indication: Crohn^s disease
     Route: 058
     Dates: start: 20180221

REACTIONS (17)
  - Liver disorder [Unknown]
  - Pancreatic disorder [Unknown]
  - Obstruction [Recovered/Resolved]
  - Gastrointestinal disorder [Unknown]
  - Bile duct stent insertion [Unknown]
  - Gastrointestinal inflammation [Unknown]
  - Frequent bowel movements [Unknown]
  - Constipation [Recovered/Resolved]
  - Dental implantation [Unknown]
  - Defaecation urgency [Unknown]
  - Colitis [Unknown]
  - Abdominal distension [Recovered/Resolved]
  - Abscess [Unknown]
  - Pain [Unknown]
  - Abdominal pain upper [Not Recovered/Not Resolved]
  - Dyspnoea [Recovered/Resolved]
  - Diarrhoea [Unknown]

NARRATIVE: CASE EVENT DATE: 20210101
